FAERS Safety Report 7377016-9 (Version None)
Quarter: 2011Q1

REPORT INFORMATION
  Report Type: 
  Country: None (occurrence: None)
  Receive Date: 20110328
  Receipt Date: 20110318
  Transmission Date: 20110831
  Serious: No
  Sender: FDA-Public Use
  Company Number: US-BIOGENIDEC-2010BI038262

PATIENT
  Sex: Female

DRUGS (1)
  1. TYSABRI [Suspect]
     Indication: MULTIPLE SCLEROSIS
     Route: 042
     Dates: start: 20080922

REACTIONS (12)
  - BALANCE DISORDER [None]
  - MASTOIDITIS [None]
  - STRESS [None]
  - SENSORY LOSS [None]
  - EAR PAIN [None]
  - WHITE BLOOD CELL DISORDER [None]
  - OTORRHOEA [None]
  - HEADACHE [None]
  - BLOOD CHOLESTEROL INCREASED [None]
  - DEAFNESS UNILATERAL [None]
  - INFECTION [None]
  - VISUAL IMPAIRMENT [None]
